FAERS Safety Report 9393701 (Version 1)
Quarter: 2013Q3

REPORT INFORMATION
  Report Type: Spontaneous
  Country: US (occurrence: US)
  Receive Date: 20130710
  Receipt Date: 20130710
  Transmission Date: 20140515
  Serious: No
  Sender: FDA-Public Use
  Company Number: US-009507513-1305USA016013

PATIENT
  Age: 72 Year
  Sex: Female
  Weight: 81.63 kg

DRUGS (3)
  1. CLARITIN LIQUIGELS [Suspect]
     Indication: RESPIRATORY TRACT CONGESTION
     Dosage: 10 MG, QPM
     Route: 048
     Dates: start: 20130516
  2. CLARITIN LIQUIGELS [Suspect]
     Indication: SINUSITIS
  3. CLARITIN LIQUIGELS [Suspect]
     Indication: MEDICAL OBSERVATION

REACTIONS (3)
  - Rhinorrhoea [Recovered/Resolved]
  - Drug ineffective for unapproved indication [Unknown]
  - Off label use [Unknown]
